FAERS Safety Report 7522035-2 (Version None)
Quarter: 2011Q2

REPORT INFORMATION
  Report Type: 
  Country: None (occurrence: None)
  Receive Date: 20110603
  Receipt Date: 20110127
  Transmission Date: 20111010
  Serious: Yes (Hospitalization, Other)
  Sender: FDA-Public Use
  Company Number: US-BAYER-201032671NA

PATIENT
  Age: 23 Year
  Sex: Female
  Weight: 104.31 kg

DRUGS (5)
  1. YAZ [Suspect]
     Indication: PRODUCT USED FOR UNKNOWN INDICATION
     Route: 048
     Dates: start: 20070101, end: 20091001
  2. MEPERIDINE [Concomitant]
  3. YASMIN [Suspect]
     Indication: PRODUCT USED FOR UNKNOWN INDICATION
     Route: 048
     Dates: start: 20070101, end: 20091001
  4. VICODIN [Concomitant]
  5. ZOFRAN [Concomitant]

REACTIONS (7)
  - CHOLECYSTITIS CHRONIC [None]
  - BILIARY DYSKINESIA [None]
  - PROCEDURAL PAIN [None]
  - CHOLESTEROSIS [None]
  - GALLBLADDER DISORDER [None]
  - ABDOMINAL PAIN UPPER [None]
  - DYSPEPSIA [None]
